FAERS Safety Report 16451430 (Version 1)
Quarter: 2019Q2

REPORT INFORMATION
  Report Type: Spontaneous
  Country: SE (occurrence: SE)
  Receive Date: 20190619
  Receipt Date: 20190619
  Transmission Date: 20190711
  Serious: Yes (Other)
  Sender: FDA-Public Use
  Company Number: SE-TEVA-2019-SE-1065443

PATIENT
  Age: 53 Year
  Sex: Female

DRUGS (2)
  1. LEVAXIN [Concomitant]
     Active Substance: LEVOTHYROXINE SODIUM
     Dates: start: 19900101
  2. METOPROLOL. [Suspect]
     Active Substance: METOPROLOL
     Indication: HYPERTENSION
     Dosage: 1 TABLET PER DAY
     Dates: start: 20161128, end: 20170119

REACTIONS (2)
  - Vasculitis [Recovered/Resolved with Sequelae]
  - Vascular injury [Recovered/Resolved with Sequelae]

NARRATIVE: CASE EVENT DATE: 20161214
